FAERS Safety Report 10440914 (Version 2)
Quarter: 2014Q3

REPORT INFORMATION
  Report Type: Spontaneous
  Country: DK (occurrence: None)
  Receive Date: 20140905
  Receipt Date: 20140917
  Transmission Date: 20150326
  Serious: Yes (Other)
  Sender: FDA-Public Use
  Company Number: 2014044759

PATIENT
  Sex: Male
  Weight: 63.05 kg

DRUGS (1)
  1. STIMATE [Suspect]
     Active Substance: DESMOPRESSIN ACETATE
     Indication: HAEMORRHAGE
     Dosage: 1 SPRAY IN 1 NOSTRIL NASAL(BOTH NOSRILS)

REACTIONS (1)
  - Drug ineffective [None]
